FAERS Safety Report 11517452 (Version 1)
Quarter: 2015Q3

REPORT INFORMATION
  Report Type: Spontaneous
  Country: US (occurrence: None)
  Receive Date: 20150916
  Receipt Date: 20150916
  Transmission Date: 20151125
  Serious: Yes (Hospitalization)
  Sender: FDA-Public Use
  Company Number: None

PATIENT
  Age: 55 Year
  Sex: Female
  Weight: 76.2 kg

DRUGS (18)
  1. NEBULIZER [Concomitant]
     Active Substance: DEVICE
  2. GINGER. [Concomitant]
     Active Substance: GINGER
  3. ALBUTEROL. [Concomitant]
     Active Substance: ALBUTEROL
  4. VITAMIN B [Concomitant]
     Active Substance: VITAMIN B
  5. TAMARIND [Concomitant]
     Active Substance: TAMARIND
  6. LEVOFLOXACIN 500 MG [Suspect]
     Active Substance: LEVOFLOXACIN
     Indication: RESPIRATORY TRACT INFECTION
     Route: 048
     Dates: start: 20140916, end: 20140921
  7. MAGNESIUM/CALCIUM/ZINC [Concomitant]
  8. FISH OIL [Concomitant]
     Active Substance: FISH OIL
  9. L-CARTININE [Concomitant]
  10. LINEOLIC ACID [Concomitant]
  11. TUMERIC [Concomitant]
     Active Substance: TURMERIC
  12. LEVOFLOXACIN 500 MG [Suspect]
     Active Substance: LEVOFLOXACIN
     Indication: ASTHMA
     Route: 048
     Dates: start: 20140916, end: 20140921
  13. ONE SCREW IN MY TOE [Concomitant]
  14. LEMONS [Concomitant]
  15. UBIQUINOL [Concomitant]
     Active Substance: UBIQUINOL
  16. THISTLE SEED [Concomitant]
  17. FLAX OIL [Concomitant]
  18. HOLY BASIL HERBAL TEAS [Concomitant]

REACTIONS (6)
  - Connective tissue disorder [None]
  - Drug ineffective [None]
  - Tendon rupture [None]
  - Anger [None]
  - Skin necrosis [None]
  - Pleurisy [None]

NARRATIVE: CASE EVENT DATE: 20140916
